FAERS Safety Report 24899223 (Version 1)
Quarter: 2025Q1

REPORT INFORMATION
  Report Type: Spontaneous
  Country: US (occurrence: None)
  Receive Date: 20250128
  Receipt Date: 20250128
  Transmission Date: 20250409
  Serious: No
  Sender: FDA-CTU
  Company Number: None

PATIENT
  Age: 12 Year
  Sex: Male
  Weight: 43.65 kg

DRUGS (4)
  1. QELBREE [Suspect]
     Active Substance: VILOXAZINE HYDROCHLORIDE
     Indication: Attention deficit hyperactivity disorder
     Route: 048
     Dates: start: 20240401, end: 20240402
  2. GUANFACINE [Concomitant]
     Active Substance: GUANFACINE
  3. ATOMOXETINE [Concomitant]
     Active Substance: ATOMOXETINE
  4. MELATONIN [Concomitant]
     Active Substance: MELATONIN

REACTIONS (1)
  - Tourette^s disorder [None]

NARRATIVE: CASE EVENT DATE: 20240401
